FAERS Safety Report 13195096 (Version 2)
Quarter: 2017Q1

REPORT INFORMATION
  Report Type: Report from Study
  Country: None (occurrence: AU)
  Receive Date: 20170207
  Receipt Date: 20170227
  Transmission Date: 20170428
  Serious: Yes (Hospitalization)
  Sender: FDA-Public Use
  Company Number: AU-ABBVIE-16K-008-1757323-00

PATIENT
  Age: 64 Year
  Sex: Female

DRUGS (5)
  1. HUMIRA [Suspect]
     Active Substance: ADALIMUMAB
     Indication: CROHN^S DISEASE
     Route: 058
  2. CELEBREX [Concomitant]
     Active Substance: CELECOXIB
     Indication: PRODUCT USED FOR UNKNOWN INDICATION
  3. HUMIRA [Suspect]
     Active Substance: ADALIMUMAB
     Route: 058
  4. NEXIUM [Concomitant]
     Active Substance: ESOMEPRAZOLE MAGNESIUM
     Indication: PRODUCT USED FOR UNKNOWN INDICATION
  5. THYROXINE [Concomitant]
     Active Substance: LEVOTHYROXINE
     Indication: PRODUCT USED FOR UNKNOWN INDICATION

REACTIONS (13)
  - Intervertebral disc protrusion [Recovered/Resolved]
  - Diarrhoea [Recovered/Resolved]
  - Hypophagia [Recovered/Resolved]
  - Feeling of body temperature change [Recovered/Resolved]
  - Device issue [Not Recovered/Not Resolved]
  - Nasopharyngitis [Recovered/Resolved]
  - Tremor [Recovered/Resolved]
  - Arthralgia [Not Recovered/Not Resolved]
  - Dyspepsia [Unknown]
  - Constipation [Recovered/Resolved]
  - Influenza [Recovered/Resolved]
  - Viral infection [Recovered/Resolved]
  - Procedural pain [Not Recovered/Not Resolved]

NARRATIVE: CASE EVENT DATE: 20161012
